FAERS Safety Report 8834143 (Version 2)
Quarter: 2012Q4

REPORT INFORMATION
  Report Type: Report from Study
  Country: GB (occurrence: GB)
  Receive Date: 20121010
  Receipt Date: 20121016
  Transmission Date: 20130627
  Serious: Yes (Other)
  Sender: FDA-Public Use
  Company Number: PHHO2012GB014461

PATIENT
  Age: 52 Year
  Sex: Female

DRUGS (1)
  1. ZOLEDRONATE [Suspect]
     Dosage: 4 mg, UNK
     Route: 042
     Dates: start: 20050920

REACTIONS (1)
  - Osteonecrosis of jaw [Recovered/Resolved]
